FAERS Safety Report 9743304 (Version 3)
Quarter: 2015Q3

REPORT INFORMATION
  Report Type: Spontaneous
  Country: US (occurrence: US)
  Receive Date: 20131210
  Receipt Date: 20150804
  Transmission Date: 20151125
  Serious: No
  Sender: FDA-Public Use
  Company Number: US-GILEAD-2009-0024933

PATIENT
  Age: 80 Year
  Sex: Female

DRUGS (11)
  1. PRILOSEC [Concomitant]
     Active Substance: OMEPRAZOLE MAGNESIUM
  2. CALTRATE W VITAMIN D [Concomitant]
  3. MULTIVITAMIN [Concomitant]
     Active Substance: VITAMINS
  4. LETAIRIS [Suspect]
     Active Substance: AMBRISENTAN
     Indication: PULMONARY ARTERIAL HYPERTENSION
     Route: 048
     Dates: start: 20090805
  5. ALBUTEROL. [Concomitant]
     Active Substance: ALBUTEROL
  6. TYLENOL [Concomitant]
     Active Substance: ACETAMINOPHEN
  7. PRESSERVATION [Concomitant]
  8. COLACE [Concomitant]
     Active Substance: DOCUSATE SODIUM
  9. LANTUS [Concomitant]
     Active Substance: INSULIN GLARGINE
  10. FOLIC ACID. [Concomitant]
     Active Substance: FOLIC ACID
  11. SPIRIVA [Concomitant]
     Active Substance: TIOTROPIUM BROMIDE MONOHYDRATE

REACTIONS (1)
  - Fatigue [Unknown]
